FAERS Safety Report 9158956 (Version 1)
Quarter: 2013Q1

REPORT INFORMATION
  Report Type: Spontaneous
  Country: GB (occurrence: GB)
  Receive Date: 20130313
  Receipt Date: 20130313
  Transmission Date: 20140127
  Serious: Yes (Other)
  Sender: FDA-Public Use
  Company Number: GB-BAYER-2013-030592

PATIENT
  Age: 9 Year
  Sex: Male

DRUGS (1)
  1. BETAFERON [Suspect]
     Dosage: UNK
     Route: 064
     Dates: start: 201104

REACTIONS (5)
  - Autism spectrum disorder [None]
  - Nocturia [None]
  - Fine motor delay [None]
  - Disturbance in social behaviour [None]
  - Gross motor delay [None]
